FAERS Safety Report 7395446-6 (Version None)
Quarter: 2011Q2

REPORT INFORMATION
  Report Type: 
  Country: None (occurrence: None)
  Receive Date: 20110405
  Receipt Date: 20110325
  Transmission Date: 20111010
  Serious: Yes (Other)
  Sender: FDA-Public Use
  Company Number: JP-PFIZER INC-2011060239

PATIENT
  Age: 76 Year
  Sex: Male

DRUGS (12)
  1. DIGOXIN [Concomitant]
     Indication: ATRIAL FIBRILLATION
     Dosage: 0.125 MG, DAILY
     Dates: start: 20101118, end: 20101204
  2. AMLODIN [Suspect]
     Indication: HYPERTENSION
     Dosage: 5 MG, DAILY
     Dates: start: 20110125, end: 20110219
  3. LAC B [Concomitant]
     Indication: SUBILEUS
     Dosage: 6 G, DAILY
     Dates: start: 20100908
  4. LASIX [Concomitant]
     Dosage: 20 MG, DAILY
     Dates: start: 20101218
  5. AMLODIN [Suspect]
     Dosage: 2.5 MG, DAILY
     Dates: start: 20110220, end: 20110225
  6. INDERAL [Concomitant]
     Indication: ATRIAL FIBRILLATION
     Dosage: 30 MG, DAILY
     Dates: start: 20100908
  7. GASMOTIN [Concomitant]
     Indication: GASTRITIS
     Dosage: 15 MG, DAILY
     Dates: start: 20101202
  8. LASIX [Concomitant]
     Indication: CARDIAC FAILURE CONGESTIVE
     Dosage: 10 MG, DAILY
     Dates: start: 20100908, end: 20101217
  9. DIGOXIN [Concomitant]
     Dosage: 0.062 MG, DAILY
     Dates: start: 20101208
  10. BLOPRESS [Concomitant]
     Indication: HYPERTENSION
     Dosage: 8 MG, DAILY
     Dates: start: 20101118
  11. CETAPRIL [Concomitant]
     Indication: HYPERTENSION
     Dosage: 12.5 MG, DAILY
     Dates: start: 20100908, end: 20101117
  12. FRANDOL [Concomitant]
     Indication: HYPERTENSION
     Dosage: 40 MG, DAILY
     Dates: start: 20101104

REACTIONS (1)
  - HYPOTHERMIA [None]
